FAERS Safety Report 10049723 (Version 1)
Quarter: 2014Q1

REPORT INFORMATION
  Report Type: Spontaneous
  Country: GB (occurrence: None)
  Receive Date: 20140328
  Receipt Date: 20140328
  Transmission Date: 20141002
  Serious: Yes (Other)
  Sender: FDA-Public Use
  Company Number: AUR-APL-2014-03875

PATIENT
  Age: 72 Year
  Sex: Female
  Weight: 63.5 kg

DRUGS (5)
  1. CITALOPRAM [Suspect]
     Indication: HEADACHE
     Dosage: 10 MG, 1 IN 1 D
     Dates: start: 20130521
  2. NORTRIPTYLINE [Suspect]
     Indication: HEADACHE
     Dosage: 10 MG (10 MG, 1 IN 1 D)
     Dates: start: 20120706
  3. ADCAL-D3 (LEKOVIT CA) [Concomitant]
  4. ALENDRONIC ACID (ALENDRONIC ACID) [Concomitant]
  5. CYTACON (CYANOCOBALAMIN) [Concomitant]

REACTIONS (11)
  - Dry mouth [None]
  - Headache [None]
  - Anxiety [None]
  - Constipation [None]
  - Dizziness [None]
  - Balance disorder [None]
  - Sleep disorder [None]
  - Dry throat [None]
  - Somnolence [None]
  - Gastrointestinal disorder [None]
  - Mental disorder [None]
